FAERS Safety Report 19143407 (Version 1)
Quarter: 2021Q2

REPORT INFORMATION
  Report Type: Spontaneous
  Country: US (occurrence: US)
  Receive Date: 20210416
  Receipt Date: 20210416
  Transmission Date: 20210717
  Serious: No
  Sender: FDA-Public Use
  Company Number: US-TARO-2021TAR00100

PATIENT

DRUGS (1)
  1. FLUOROURACIL TOPICAL CREAM USP 5% [Suspect]
     Active Substance: FLUOROURACIL
     Indication: SKIN CANCER
     Dosage: PEA SIZE AMOUNT, DAILY
     Route: 061
     Dates: start: 202011, end: 202011

REACTIONS (4)
  - Temperature intolerance [Recovered/Resolved]
  - Burning sensation [Recovered/Resolved]
  - Off label use [Unknown]
  - Paraesthesia [Recovered/Resolved]

NARRATIVE: CASE EVENT DATE: 202011
